FAERS Safety Report 10073025 (Version 3)
Quarter: 2014Q2

REPORT INFORMATION
  Report Type: Spontaneous
  Country: BE (occurrence: BE)
  Receive Date: 20140411
  Receipt Date: 20140418
  Transmission Date: 20141212
  Serious: Yes (Other)
  Sender: FDA-Public Use
  Company Number: BE-PFIZER INC-2014094255

PATIENT
  Age: 55 Year
  Sex: Female
  Weight: 62 kg

DRUGS (5)
  1. PANTOMED [Suspect]
     Indication: GASTROOESOPHAGEAL REFLUX DISEASE
     Dosage: 40 MG, DAILY
     Route: 048
     Dates: start: 20140320, end: 20140324
  2. BISOPROLOL [Concomitant]
  3. LOORTAN [Concomitant]
  4. L-THYROXINE [Concomitant]
  5. SIMVASTATIN [Concomitant]

REACTIONS (2)
  - Oesophageal spasm [Recovered/Resolved]
  - Dyspepsia [Recovered/Resolved]
